FAERS Safety Report 8574987-X (Version None)
Quarter: 2012Q3

REPORT INFORMATION
  Report Type: 
  Country: None (occurrence: None)
  Receive Date: 20120807
  Receipt Date: 20120709
  Transmission Date: 20120928
  Serious: No
  Sender: FDA-Public Use
  Company Number: US-009507513-1207USA004029

PATIENT

DRUGS (7)
  1. REBETOL [Suspect]
  2. TYLENOL [Concomitant]
  3. ESTRADIOL (+) NORETHINDRONE [Concomitant]
  4. NEUPOGEN [Suspect]
  5. PEG-INTRON [Suspect]
  6. PROZAC [Concomitant]
  7. VICTRELIS [Suspect]
     Dosage: 4 DF, TID
     Route: 048

REACTIONS (3)
  - NASAL DRYNESS [None]
  - ANAEMIA [None]
  - EPISTAXIS [None]
